FAERS Safety Report 9069482 (Version 1)
Quarter: 2013Q1

REPORT INFORMATION
  Report Type: Spontaneous
  Country: JP (occurrence: JP)
  Receive Date: 20130215
  Receipt Date: 20130215
  Transmission Date: 20140127
  Serious: Yes (Other)
  Sender: FDA-Public Use
  Company Number: JP-ASTRAZENECA-2013SE09145

PATIENT
  Age: 32 Year
  Sex: Male

DRUGS (2)
  1. MARCAIN [Suspect]
     Indication: LOCAL ANAESTHESIA
     Route: 065
  2. XYLOCAINE [Suspect]
     Indication: LOCAL ANAESTHESIA
     Route: 065

REACTIONS (2)
  - Loss of consciousness [Recovered/Resolved]
  - Tonic convulsion [Recovered/Resolved]
